FAERS Safety Report 6706264-3 (Version None)
Quarter: 2010Q2

REPORT INFORMATION
  Report Type: 
  Country: None (occurrence: None)
  Receive Date: 20100503
  Receipt Date: 20100427
  Transmission Date: 20101027
  Serious: Yes (Other)
  Sender: FDA-Public Use
  Company Number: FR-SANOFI-AVENTIS-2010SA024271

PATIENT
  Sex: Male

DRUGS (1)
  1. NASACORT [Suspect]
     Indication: DRUG USE FOR UNKNOWN INDICATION
     Route: 045

REACTIONS (3)
  - ANGIOEDEMA [None]
  - FACIAL PALSY [None]
  - TONGUE PARALYSIS [None]
